FAERS Safety Report 14435353 (Version 1)
Quarter: 2018Q1

REPORT INFORMATION
  Report Type: Spontaneous
  Country: JP (occurrence: JP)
  Receive Date: 20180125
  Receipt Date: 20180125
  Transmission Date: 20180509
  Serious: Yes (Death, Other)
  Sender: FDA-Public Use
  Company Number: JP-ROCHE-2048622

PATIENT
  Age: 78 Year
  Sex: Male
  Weight: 72 kg

DRUGS (6)
  1. OXALIPLATIN. [Suspect]
     Active Substance: OXALIPLATIN
     Indication: COLON CANCER
     Dosage: SEVEN TIMES?DOSE INTERVAL UNCERTAINTY
     Route: 042
     Dates: start: 20170801, end: 20171205
  2. AVASTIN [Suspect]
     Active Substance: BEVACIZUMAB
     Indication: COLON CANCER
     Dosage: DOSAGE IS UNCERTAIN.
     Route: 041
     Dates: start: 20170801, end: 20171205
  3. TS-1 [Suspect]
     Active Substance: GIMERACIL\OTERACIL\TEGAFUR
     Indication: COLON CANCER
     Dosage: TIMES OF X7 ON THE 14TH?DOSE INTERVAL UNCERTAINTY
     Route: 048
     Dates: start: 20170801, end: 20171205
  4. CYMBALTA [Concomitant]
     Active Substance: DULOXETINE HYDROCHLORIDE
     Dosage: 1X?DOSE INTERVAL UNCERTAINTY
     Route: 048
  5. MIYA-BM [Concomitant]
     Active Substance: CLOSTRIDIUM BUTYRICUM SPORES STRAIN M-55
     Dosage: 3X?DOSE INTERVAL UNCERTAINTY
     Route: 048
  6. NEXIUM [Concomitant]
     Active Substance: ESOMEPRAZOLE MAGNESIUM
     Dosage: 1X?DOSE INTERVAL UNCERTAINTY
     Route: 048

REACTIONS (7)
  - Decreased appetite [Unknown]
  - Cerebral haemorrhage [Fatal]
  - Cerebral ventricular rupture [Fatal]
  - Subarachnoid haemorrhage [Fatal]
  - Metastases to central nervous system [Unknown]
  - Nausea [Unknown]
  - Brain oedema [Unknown]

NARRATIVE: CASE EVENT DATE: 20171214
